FAERS Safety Report 20720864 (Version 1)
Quarter: 2022Q2

REPORT INFORMATION
  Report Type: Spontaneous
  Country: US (occurrence: None)
  Receive Date: 20220415
  Receipt Date: 20220415
  Transmission Date: 20220721
  Serious: Yes (Death)
  Sender: FDA-Public Use
  Company Number: None

PATIENT
  Age: 81 Year
  Sex: Female

DRUGS (2)
  1. KEYTRUDA [Suspect]
     Active Substance: PEMBROLIZUMAB
     Indication: Soft tissue sarcoma
     Dates: start: 20220117, end: 20220117
  2. LISINOPRIL [Concomitant]

REACTIONS (1)
  - Myocarditis [None]

NARRATIVE: CASE EVENT DATE: 20220211
